FAERS Safety Report 8128996-5 (Version None)
Quarter: 2012Q1

REPORT INFORMATION
  Report Type: 
  Country: None (occurrence: None)
  Receive Date: 20120210
  Receipt Date: 20120206
  Transmission Date: 20120608
  Serious: Yes (Hospitalization)
  Sender: FDA-Public Use
  Company Number: JP-ELI_LILLY_AND_COMPANY-JP201201002352

PATIENT
  Sex: Male

DRUGS (6)
  1. PANVITAN [Concomitant]
     Dosage: 1 G, UNK
     Route: 048
     Dates: start: 20091013
  2. ALIMTA [Suspect]
     Indication: LUNG ADENOCARCINOMA STAGE IV
     Dosage: 850 MG, UNK
     Route: 042
     Dates: start: 20091019, end: 20091116
  3. METHYCOBAL [Concomitant]
     Indication: PROPHYLAXIS
     Dosage: 2 UNK, UNK
     Route: 042
     Dates: start: 20091019
  4. DECADRON [Concomitant]
     Indication: PROPHYLAXIS
     Dosage: 4 MG, UNK
     Route: 042
     Dates: start: 20091019, end: 20091019
  5. FOLIC ACID [Concomitant]
  6. PRIMPERAN TAB [Concomitant]
     Indication: PROPHYLAXIS
     Dosage: 10 MG, UNK
     Route: 042
     Dates: start: 20091019, end: 20091019

REACTIONS (3)
  - GASTRIC HAEMORRHAGE [None]
  - HAEMOGLOBIN DECREASED [None]
  - GASTRIC ULCER [None]
